FAERS Safety Report 7652105-X (Version None)
Quarter: 2011Q3

REPORT INFORMATION
  Report Type: 
  Country: None (occurrence: None)
  Receive Date: 20110803
  Receipt Date: 20110725
  Transmission Date: 20111222
  Serious: Yes (Death, Life-Threatening)
  Sender: FDA-Public Use
  Company Number: JP-CELGENEUS-087-50794-11063215

PATIENT
  Age: 60 Year
  Sex: Male

DRUGS (12)
  1. GAMIMUNE N 5% [Concomitant]
     Dosage: 5 GRAM
     Route: 041
     Dates: start: 20110516, end: 20110519
  2. EXACIN [Concomitant]
     Dosage: 400 MILLIGRAM
     Route: 041
     Dates: start: 20110516, end: 20110519
  3. NASEO-OD [Concomitant]
     Dosage: .1 MILLIGRAM
     Route: 048
     Dates: start: 20110516, end: 20110517
  4. ANTIBIOTICS [Suspect]
     Indication: PNEUMONIA
     Route: 065
     Dates: start: 20110515
  5. NASEO-OD [Concomitant]
     Dosage: .1 MILLIGRAM
     Route: 048
     Dates: start: 20110406, end: 20110412
  6. VIDAZA [Suspect]
     Dosage: 100 MILLIGRAM
     Route: 058
     Dates: start: 20110516, end: 20110519
  7. FIRSTCIN [Concomitant]
     Dosage: 4 GRAM
     Route: 041
     Dates: start: 20110404, end: 20110415
  8. VIDAZA [Suspect]
     Indication: MYELODYSPLASTIC SYNDROME TRANSFORMATION
     Dosage: 100 MILLIGRAM
     Route: 058
     Dates: start: 20110406, end: 20110412
  9. FUNGUARD [Concomitant]
     Dosage: 150 MILLIGRAM
     Route: 041
     Dates: start: 20110516, end: 20110519
  10. RECOMODULIN [Concomitant]
     Dosage: 17920 IU (INTERNATIONAL UNIT)
     Route: 041
     Dates: start: 20110517, end: 20110519
  11. MEROPENEM [Concomitant]
     Dosage: 2 GRAM
     Route: 041
     Dates: start: 20110415, end: 20110506
  12. MEROPENEM [Concomitant]
     Dosage: 2 GRAM
     Route: 041
     Dates: start: 20110515, end: 20110519

REACTIONS (4)
  - ACUTE MYELOID LEUKAEMIA [None]
  - PNEUMONIA [None]
  - MYELODYSPLASTIC SYNDROME TRANSFORMATION [None]
  - DISSEMINATED INTRAVASCULAR COAGULATION [None]
